FAERS Safety Report 10855205 (Version 1)
Quarter: 2015Q1

REPORT INFORMATION
  Report Type: Spontaneous
  Country: US (occurrence: US)
  Receive Date: 20150223
  Receipt Date: 20150223
  Transmission Date: 20150721
  Serious: Yes (Death)
  Sender: FDA-Public Use
  Company Number: US-ELI_LILLY_AND_COMPANY-US201502006562

PATIENT

DRUGS (3)
  1. GEMCITABINE HYDROCHLORIDE. [Suspect]
     Active Substance: GEMCITABINE HYDROCHLORIDE
     Indication: PANCREATIC CARCINOMA METASTATIC
     Dosage: 1000 MG/M2, CYCLICAL
     Route: 051
  2. CISPLATIN. [Suspect]
     Active Substance: CISPLATIN
     Indication: PANCREATIC CARCINOMA METASTATIC
     Dosage: 20 MG/M2, CYCLICAL
     Route: 051
  3. BEVACIZUMAB [Suspect]
     Active Substance: BEVACIZUMAB
     Indication: PANCREATIC CARCINOMA METASTATIC
     Dosage: 10 MG/KG, CYCLICAL
     Route: 051

REACTIONS (2)
  - Death [Fatal]
  - Myocardial infarction [Fatal]
